FAERS Safety Report 17803222 (Version 1)
Quarter: 2020Q2

REPORT INFORMATION
  Report Type: Spontaneous
  Country: RO (occurrence: RO)
  Receive Date: 20200519
  Receipt Date: 20200519
  Transmission Date: 20200714
  Serious: Yes (Other)
  Sender: FDA-Public Use
  Company Number: RO-ROCHE-2601444

PATIENT
  Age: 64 Year
  Weight: 82 kg

DRUGS (2)
  1. ROACTEMRA [Suspect]
     Active Substance: TOCILIZUMAB
     Indication: COVID-19
     Dosage: (3 VIALS OF 80 MG AND 1 VIAL OF 400 MG)
     Route: 065
     Dates: start: 2020
  2. ROACTEMRA [Suspect]
     Active Substance: TOCILIZUMAB
     Indication: MULTIPLE ORGAN DYSFUNCTION SYNDROME

REACTIONS (3)
  - Condition aggravated [Unknown]
  - Off label use [Unknown]
  - Intentional product use issue [Unknown]

NARRATIVE: CASE EVENT DATE: 2020
